FAERS Safety Report 4469054-0 (Version None)
Quarter: 2004Q4

REPORT INFORMATION
  Report Type: 
  Country: None (occurrence: None)
  Receive Date: 20041001
  Receipt Date: 20040921
  Transmission Date: 20050328
  Serious: Yes (Death, Life-Threatening, Hospitalization)
  Sender: FDA-Public Use
  Company Number: 2004231725JP

PATIENT
  Age: 68 Year
  Sex: Male

DRUGS (3)
  1. CLINDAMYCIN HCL [Suspect]
     Indication: PNEUMONIA ASPIRATION
     Dosage: 600 MG, DAILY, IV   ; 600 MG, BID, IV
     Route: 042
     Dates: start: 20040826, end: 20040826
  2. CLINDAMYCIN HCL [Suspect]
     Indication: PNEUMONIA ASPIRATION
     Dosage: 600 MG, DAILY, IV   ; 600 MG, BID, IV
     Route: 042
     Dates: start: 20040827, end: 20040827
  3. LAMISIL [Concomitant]

REACTIONS (3)
  - HEPATIC ENZYME INCREASED [None]
  - LIVER DISORDER [None]
  - MULTI-ORGAN FAILURE [None]
